FAERS Safety Report 4461002-2 (Version None)
Quarter: 2004Q3

REPORT INFORMATION
  Report Type: 
  Country: None (occurrence: None)
  Receive Date: 20040928
  Receipt Date: 20040625
  Transmission Date: 20050211
  Serious: No
  Sender: FDA-Public Use
  Company Number: US-GLAXOSMITHKLINE-A0516120A

PATIENT
  Age: 67 Year
  Sex: Male

DRUGS (4)
  1. ADVAIR DISKUS 100/50 [Suspect]
     Dosage: 2PUFF TWICE PER DAY
     Route: 055
  2. ALBUTEROL [Concomitant]
  3. PREDNISONE [Concomitant]
  4. QVAR 40 [Concomitant]

REACTIONS (1)
  - HOARSENESS [None]
